FAERS Safety Report 6661365-3 (Version None)
Quarter: 2010Q1

REPORT INFORMATION
  Report Type: 
  Country: None (occurrence: None)
  Receive Date: 20100331
  Receipt Date: 20100323
  Transmission Date: 20100710
  Serious: Yes (Hospitalization, Other)
  Sender: FDA-Public Use
  Company Number: PHHY2010BR17905

PATIENT
  Age: 59 Year
  Sex: Female

DRUGS (4)
  1. XOLAIR [Suspect]
     Indication: ASTHMA
     Dosage: 1 DF, BIW
     Route: 058
  2. FORASEQ [Suspect]
     Dosage: TWICE A DAY
  3. PREDNISONE [Concomitant]
     Dosage: 60 MG PER DAY
     Dates: start: 20100322
  4. CORTICOSTEROID NOS [Concomitant]
     Indication: ASTHMA

REACTIONS (5)
  - CHEST PAIN [None]
  - DRUG INEFFECTIVE [None]
  - DYSPNOEA [None]
  - FATIGUE [None]
  - PLEURAL EFFUSION [None]
